FAERS Safety Report 8263178-8 (Version None)
Quarter: 2012Q1

REPORT INFORMATION
  Report Type: 
  Country: None (occurrence: None)
  Receive Date: 20120327
  Receipt Date: 20110503
  Transmission Date: 20120608
  Serious: Yes (Other)
  Sender: FDA-Public Use
  Company Number: PHHY2011US34169

PATIENT
  Age: 72 Year
  Sex: Male
  Weight: 142 kg

DRUGS (1)
  1. GLEEVEC [Suspect]
     Indication: GASTROINTESTINAL STROMAL TUMOUR
     Dosage: 400 MG, PER DAY, ORAL; 400 MG, BID, ORAL
     Route: 048
     Dates: start: 20110102

REACTIONS (7)
  - GASTROOESOPHAGEAL REFLUX DISEASE [None]
  - VOMITING [None]
  - FLATULENCE [None]
  - NAUSEA [None]
  - ERUCTATION [None]
  - GASTROINTESTINAL DISORDER [None]
  - EARLY SATIETY [None]
